FAERS Safety Report 4931391-0 (Version None)
Quarter: 2006Q1

REPORT INFORMATION
  Report Type: 
  Country: None (occurrence: None)
  Receive Date: 20060303
  Receipt Date: 20060216
  Transmission Date: 20060701
  Serious: Yes (Hospitalization)
  Sender: FDA-Public Use
  Company Number: PHRM2006FR00806

PATIENT
  Age: 76 Year
  Sex: Male

DRUGS (5)
  1. ZOMETA [Suspect]
     Indication: MULTIPLE MYELOMA
     Route: 042
     Dates: start: 20041227
  2. VELCADE [Suspect]
     Route: 042
     Dates: start: 20050314, end: 20050721
  3. NEURONTIN [Concomitant]
     Route: 048
     Dates: start: 20050707
  4. EFFEXOR [Concomitant]
     Dosage: 37.5 MG, TID
     Route: 048
     Dates: start: 20040917
  5. AVLOCARDYL [Concomitant]
     Indication: MIGRAINE

REACTIONS (6)
  - ARTHRALGIA [None]
  - BLOOD IRON INCREASED [None]
  - CONCOMITANT DISEASE AGGRAVATED [None]
  - MYALGIA [None]
  - PERIPHERAL SENSORY NEUROPATHY [None]
  - STEM CELL TRANSPLANT [None]
